FAERS Safety Report 7025579-5 (Version None)
Quarter: 2010Q4

REPORT INFORMATION
  Report Type: 
  Country: None (occurrence: None)
  Receive Date: 20101003
  Receipt Date: 20100927
  Transmission Date: 20110411
  Serious: Yes (Hospitalization)
  Sender: FDA-Public Use
  Company Number: PHHO2010RU06077

PATIENT
  Sex: Male

DRUGS (11)
  1. IMATINIB [Suspect]
     Indication: CHRONIC MYELOID LEUKAEMIA
     Dosage: 400 MG, QD
     Route: 048
     Dates: start: 20081129, end: 20100201
  2. IMATINIB [Suspect]
     Dosage: 600 MG, QD
     Route: 048
     Dates: start: 20100202, end: 20100514
  3. IMATINIB [Suspect]
     Dosage: 400 MG, QD
     Route: 048
     Dates: start: 20100515, end: 20100601
  4. ESSENTIALE [Concomitant]
     Dosage: UNK
     Dates: start: 20100312, end: 20100401
  5. ACTOVEGIN 10%-NACL [Concomitant]
     Dosage: UNK
     Dates: start: 20100312, end: 20100401
  6. PENTOXIFYLLINE [Concomitant]
     Dosage: UNK
     Dates: start: 20100312, end: 20100401
  7. PERFALGAN [Concomitant]
     Dosage: UNK
     Dates: start: 20100318, end: 20100320
  8. PHOSPHOGLIV [Concomitant]
     Dosage: UNK
     Dates: start: 20100312, end: 20100401
  9. PREDNISOLONE [Concomitant]
  10. FOLIC ACID [Concomitant]
  11. CALCIUM CHLORIDE [Concomitant]

REACTIONS (2)
  - LEUKOCYTOSIS [None]
  - THROMBOCYTOSIS [None]
